FAERS Safety Report 23978918 (Version 4)
Quarter: 2024Q4

REPORT INFORMATION
  Report Type: Report from Study
  Country: US (occurrence: US)
  Receive Date: 20240615
  Receipt Date: 20241107
  Transmission Date: 20250115
  Serious: Yes (Hospitalization, Other)
  Sender: UCB
  Company Number: US-UCBSA-2024027995

PATIENT
  Sex: Male

DRUGS (1)
  1. BIMEKIZUMAB [Suspect]
     Active Substance: BIMEKIZUMAB
     Indication: Psoriasis
     Dosage: 320 MILLIGRAM, EV 4 WEEKS
     Route: 058
     Dates: start: 20240313, end: 20240501

REACTIONS (12)
  - Anal abscess [Recovering/Resolving]
  - Debridement [Recovering/Resolving]
  - Infection [Recovering/Resolving]
  - Fistula [Recovering/Resolving]
  - Colon operation [Recovering/Resolving]
  - Drain placement [Recovering/Resolving]
  - Abscess [Unknown]
  - Haemorrhoids [Not Recovered/Not Resolved]
  - Surgery [Not Recovered/Not Resolved]
  - Abscess drainage [Not Recovered/Not Resolved]
  - Psoriasis [Recovering/Resolving]
  - Intentional dose omission [Unknown]

NARRATIVE: CASE EVENT DATE: 20240101
